FAERS Safety Report 8170720-4 (Version None)
Quarter: 2012Q1

REPORT INFORMATION
  Report Type: 
  Country: None (occurrence: None)
  Receive Date: 20120104
  Receipt Date: 20111027
  Transmission Date: 20120608
  Serious: No
  Sender: FDA-Public Use
  Company Number: 2011HGS-002698

PATIENT
  Age: 62 Year
  Sex: Female
  Weight: 70.3075 kg

DRUGS (10)
  1. ECOTRIN (ACETYLSALICYLIC ACID) (ACETYLSALICYLIC ACID) [Concomitant]
  2. CALCIUM (CALCIUM) (CALCIUM) [Concomitant]
  3. PLAQUENIL (HYDROXYCHLOROQUINE SULFATE) (HYDROXYCHLOROQUINE SULFATE) [Concomitant]
  4. PREDNISONE [Concomitant]
  5. BENLYSTA [Suspect]
     Indication: SYSTEMIC LUPUS ERYTHEMATOSUS
     Dosage: 10 MG/KG, 1 IN 4 WK, INTRAVENOUS
     Route: 042
     Dates: start: 20110606
  6. NORVASC [Concomitant]
  7. ACTIVELLA (OESTRANORM) (ESTRADIOL, NORETHISTERONE) [Concomitant]
  8. ATELVIA (RISEDRONATE SODIUM) [Concomitant]
  9. LIPITOR [Concomitant]
  10. RELPAX (ELETRIPTAN HYDROBROMIDE) (ELETRIPTAN HYDROBROMIDE) [Concomitant]

REACTIONS (3)
  - BURNOUT SYNDROME [None]
  - MIGRAINE [None]
  - CONFUSIONAL STATE [None]
